FAERS Safety Report 8523347-6 (Version None)
Quarter: 2012Q3

REPORT INFORMATION
  Report Type: 
  Country: None (occurrence: None)
  Receive Date: 20120713
  Receipt Date: 20120713
  Transmission Date: 20120928
  Serious: No
  Sender: FDA-Public Use
  Company Number: None

PATIENT

DRUGS (1)
  1. CISPLATIN [Suspect]
     Dosage: 96 MG ONCE IV
     Route: 042
     Dates: start: 20111005, end: 20111005

REACTIONS (4)
  - VOMITING [None]
  - NAUSEA [None]
  - DEHYDRATION [None]
  - DRUG DOSE OMISSION [None]
